FAERS Safety Report 6978952-5 (Version None)
Quarter: 2010Q3

REPORT INFORMATION
  Report Type: 
  Country: None (occurrence: None)
  Receive Date: 20100913
  Receipt Date: 20100831
  Transmission Date: 20110219
  Serious: Yes (Hospitalization)
  Sender: FDA-Public Use
  Company Number: JP-MERCK-1007USA01253

PATIENT
  Age: 60 Year
  Sex: Female
  Weight: 55 kg

DRUGS (8)
  1. FOSAMAX [Suspect]
     Indication: OSTEOPOROSIS
     Route: 048
  2. NABOAL [Concomitant]
     Route: 048
     Dates: start: 20040518
  3. RHEUMATREX [Concomitant]
     Route: 048
     Dates: start: 20040518
  4. RHEUMATREX [Concomitant]
     Route: 048
     Dates: start: 20040518
  5. FOLIAMIN [Concomitant]
     Route: 048
     Dates: start: 20040518
  6. PROGRAF [Concomitant]
     Route: 048
     Dates: start: 20060530
  7. PREDNISOLONE [Concomitant]
     Route: 048
     Dates: start: 20080812
  8. MUCOSTA [Concomitant]
     Route: 048
     Dates: start: 20060530

REACTIONS (5)
  - BLOOD ALKALINE PHOSPHATASE INCREASED [None]
  - FALL [None]
  - FEMUR FRACTURE [None]
  - FRACTURE DELAYED UNION [None]
  - PAIN IN EXTREMITY [None]
